FAERS Safety Report 4655579-1 (Version None)
Quarter: 2005Q2

REPORT INFORMATION
  Report Type: 
  Country: None (occurrence: None)
  Receive Date: 20050505
  Receipt Date: 20050428
  Transmission Date: 20051028
  Serious: Yes (Other)
  Sender: FDA-Public Use
  Company Number: 2005067199

PATIENT
  Age: 78 Year
  Sex: Female
  Weight: 63.9572 kg

DRUGS (5)
  1. LIPITOR [Suspect]
     Indication: BLOOD CHOLESTEROL INCREASED
     Dosage: ORAL
     Route: 048
     Dates: start: 20040925, end: 20050201
  2. GEMFIBROZIL [Concomitant]
  3. ASCORBIC ACID [Concomitant]
  4. PYRIDOXINE HCL [Concomitant]
  5. ALENDRONATE SODIUM [Concomitant]

REACTIONS (6)
  - BACK PAIN [None]
  - FALL [None]
  - HEADACHE [None]
  - LIVER DISORDER [None]
  - PAIN IN EXTREMITY [None]
  - SURGERY [None]
